FAERS Safety Report 6768940-6 (Version None)
Quarter: 2010Q2

REPORT INFORMATION
  Report Type: 
  Country: None (occurrence: None)
  Receive Date: 20100615
  Receipt Date: 20100601
  Transmission Date: 20101027
  Serious: Yes (Hospitalization)
  Sender: FDA-Public Use
  Company Number: DE-BIOGENIDEC-2010BI018107

PATIENT
  Age: 58 Year
  Sex: Female

DRUGS (4)
  1. TYSABRI [Suspect]
     Indication: MULTIPLE SCLEROSIS
     Route: 042
     Dates: start: 20070511
  2. ANTACIDS (NOS) [Concomitant]
  3. MULTI-VITAMINS [Concomitant]
  4. MUSCLE RELAXANTS (NOS) [Concomitant]

REACTIONS (1)
  - THROMBOSIS [None]
